FAERS Safety Report 17493336 (Version 2)
Quarter: 2020Q1

REPORT INFORMATION
  Report Type: Spontaneous
  Country: US (occurrence: US)
  Receive Date: 20200303
  Receipt Date: 20200312
  Transmission Date: 20200409
  Serious: Yes (Hospitalization)
  Sender: FDA-Public Use
  Company Number: US-ACTELION-A-NJ2020-202389

PATIENT
  Age: 65 Year
  Sex: Female

DRUGS (14)
  1. OPSUMIT [Suspect]
     Active Substance: MACITENTAN
     Indication: PULMONARY ARTERIAL HYPERTENSION
     Dosage: 10 MG, QD
     Route: 048
     Dates: start: 20170428, end: 20200227
  2. PROAIR HFA [Concomitant]
     Active Substance: ALBUTEROL SULFATE
     Dosage: 90 MG, 2 PUFFS INHALED 4X DAILY AS NEEDED
  3. BYSTOLIC [Concomitant]
     Active Substance: NEBIVOLOL HYDROCHLORIDE
     Dosage: 10 MG, QD
  4. SYNTHROID [Concomitant]
     Active Substance: LEVOTHYROXINE SODIUM
     Indication: HYPOTHYROIDISM
  5. MIRALAX [Concomitant]
     Active Substance: POLYETHYLENE GLYCOL 3350
     Dosage: 17 G, QD AS NEEDED
  6. MIRTAZAPINE. [Concomitant]
     Active Substance: MIRTAZAPINE
     Indication: DEPRESSION
     Dosage: UNK, QD AT BEDTIME
  7. OMEPRAZOLE. [Concomitant]
     Active Substance: OMEPRAZOLE
     Indication: GASTROOESOPHAGEAL REFLUX DISEASE
     Dosage: 20 MG, QD
  8. FERROUS SULFATE. [Concomitant]
     Active Substance: FERROUS SULFATE
     Dosage: 325 MG, QD
  9. SILDENAFIL. [Concomitant]
     Active Substance: SILDENAFIL
     Dosage: 20 MG, QD
  10. ALBUTEROL. [Concomitant]
     Active Substance: ALBUTEROL
     Dosage: 2.5 MG/ML (3 MILLILITER) INHALED AS NEEDED
  11. DULOXETINE. [Concomitant]
     Active Substance: DULOXETINE
     Indication: DEPRESSION
     Dosage: 30 MG, QD
  12. UPTRAVI [Suspect]
     Active Substance: SELEXIPAG
     Indication: PULMONARY ARTERIAL HYPERTENSION
     Dosage: 1600 MCG, BID
     Route: 048
     Dates: start: 20171219
  13. DICYCLOMINE [Concomitant]
     Active Substance: DICYCLOMINE HYDROCHLORIDE
     Dosage: UNK, TID AS NEEDED
  14. ACETAMINOPHEN. [Concomitant]
     Active Substance: ACETAMINOPHEN
     Dosage: 500 MG EVERY 6 HOURS AS NEEDED

REACTIONS (40)
  - Hypoxia [Recovering/Resolving]
  - Crepitations [Recovering/Resolving]
  - Lymphocyte percentage decreased [Unknown]
  - Blood urea increased [Recovering/Resolving]
  - Blood urea nitrogen/creatinine ratio increased [Unknown]
  - Blood glucose increased [Unknown]
  - Procalcitonin increased [Unknown]
  - Neutrophil count increased [Unknown]
  - Lymphocyte count decreased [Unknown]
  - Haemoglobin decreased [Unknown]
  - Prothrombin time prolonged [Unknown]
  - Cardiac failure congestive [Recovering/Resolving]
  - Chronic obstructive pulmonary disease [Recovering/Resolving]
  - Atelectasis [Unknown]
  - Blood pressure decreased [Unknown]
  - Blood sodium decreased [Recovering/Resolving]
  - Blood albumin decreased [Unknown]
  - Chronic kidney disease [Recovering/Resolving]
  - Bacteraemia [Unknown]
  - Cough [Unknown]
  - Lung consolidation [Unknown]
  - Hypertension [Unknown]
  - Pulmonary hypertension [Unknown]
  - Mean cell haemoglobin concentration decreased [Unknown]
  - Pulmonary oedema [Unknown]
  - White blood cell count increased [Recovered/Resolved]
  - Brain natriuretic peptide increased [Unknown]
  - Pneumonia streptococcal [Unknown]
  - Oxygen saturation decreased [Recovering/Resolving]
  - Pleural effusion [Unknown]
  - Lung infiltration [Unknown]
  - Neutrophil percentage increased [Unknown]
  - Blood chloride decreased [Recovering/Resolving]
  - Blood creatinine increased [Recovering/Resolving]
  - Blood osmolarity increased [Unknown]
  - Dyspnoea [Recovering/Resolving]
  - Chest discomfort [Unknown]
  - Haemoptysis [Recovered/Resolved]
  - Lung disorder [Unknown]
  - Atrial fibrillation [Unknown]

NARRATIVE: CASE EVENT DATE: 202002
